FAERS Safety Report 17235098 (Version 1)
Quarter: 2020Q1

REPORT INFORMATION
  Report Type: Spontaneous
  Country: IT (occurrence: IT)
  Receive Date: 20200106
  Receipt Date: 20200106
  Transmission Date: 20200409
  Serious: Yes (Hospitalization, Other)
  Sender: FDA-Public Use
  Company Number: IT-AUROBINDO-AUR-APL-2019-107701

PATIENT
  Age: 77 Year
  Sex: Female

DRUGS (6)
  1. FLUOROURACIL 5 FU [Suspect]
     Active Substance: FLUOROURACIL
     Indication: ADENOCARCINOMA
     Dosage: 400 MILLIGRAM/SQ. METER
     Route: 065
  2. FLUOROURACIL 5 FU [Suspect]
     Active Substance: FLUOROURACIL
     Dosage: 1200 MILLIGRAM/SQ. METER
     Route: 005
  3. IRINOTECAN [Suspect]
     Active Substance: IRINOTECAN
     Indication: ADENOCARCINOMA
     Dosage: 125 MILLIGRAM, EVERY 7 DAYS
     Route: 065
  4. OXALIPLATIN. [Suspect]
     Active Substance: OXALIPLATIN
     Indication: ADENOCARCINOMA
     Dosage: 85 MILLIGRAM/SQ. METER
     Route: 065
  5. FOLINIC ACID [Suspect]
     Active Substance: LEUCOVORIN
     Indication: ADENOCARCINOMA
     Dosage: 100 MILLIGRAM/SQ. METER
     Route: 065
  6. TIPIRACIL;TRIFLURIDINE [Suspect]
     Active Substance: TIPIRACIL HYDROCHLORIDE\TRIFLURIDINE
     Indication: PRODUCT USED FOR UNKNOWN INDICATION
     Dosage: 30 MG/MQ, TWO TIMES A DAY
     Route: 065

REACTIONS (2)
  - Gastrointestinal toxicity [Unknown]
  - Diarrhoea [Unknown]
